FAERS Safety Report 6174948-4 (Version None)
Quarter: 2009Q2

REPORT INFORMATION
  Report Type: 
  Country: None (occurrence: None)
  Receive Date: 20090430
  Receipt Date: 20081020
  Transmission Date: 20091009
  Serious: No
  Sender: FDA-Public Use
  Company Number: US-ASTRAZENECA-2008UW23231

PATIENT
  Sex: Female

DRUGS (3)
  1. NEXIUM [Suspect]
     Dosage: UNKNOWN
     Route: 048
     Dates: start: 20060101
  2. KLONAPIN [Suspect]
     Route: 065
     Dates: start: 20080701
  3. KLONAPIN [Suspect]
     Dates: start: 20080701

REACTIONS (1)
  - ILL-DEFINED DISORDER [None]
